FAERS Safety Report 7691476-5 (Version None)
Quarter: 2011Q3

REPORT INFORMATION
  Report Type: 
  Country: None (occurrence: None)
  Receive Date: 20110818
  Receipt Date: 20101110
  Transmission Date: 20111222
  Serious: Yes (Death)
  Sender: FDA-Public Use
  Company Number: DE-AMGEN-DEUSP2010001734

PATIENT

DRUGS (15)
  1. CEFTAZIDIME [Concomitant]
     Dosage: UNK
     Dates: start: 19920623, end: 19920715
  2. ZIENAM [Concomitant]
     Dosage: UNK
     Dates: start: 19920716, end: 19920728
  3. PROSTAVASIN                        /00501501/ [Concomitant]
     Dosage: UNK
     Dates: start: 19920713, end: 19920728
  4. MORPHINE [Concomitant]
     Dosage: UNK
     Dates: start: 19920704, end: 19920728
  5. ALDACTONE [Concomitant]
     Dosage: UNK
     Dates: start: 19920724, end: 19920728
  6. ETOPOSIDE [Concomitant]
  7. CYCLOSPORINE [Concomitant]
     Dosage: UNK
     Dates: start: 19920630, end: 19920728
  8. ACYCLOVIR [Concomitant]
     Dosage: UNK
     Dates: start: 19920701, end: 19920728
  9. ACETYLCYSTEINE [Concomitant]
     Dosage: UNK
     Dates: start: 19920708, end: 19920718
  10. FUROSEMIDE [Concomitant]
     Dosage: UNK
     Dates: start: 19920722, end: 19920728
  11. CYCLOPHOSPHAMIDE [Concomitant]
  12. NEUPOGEN [Suspect]
     Indication: ALLOGENIC BONE MARROW TRANSPLANTATION THERAPY
     Dosage: 800 A?G, UNK
     Route: 042
     Dates: start: 19920709, end: 19920720
  13. BUSULFAN [Concomitant]
  14. VANCOMYCIN [Concomitant]
     Dosage: UNK
     Dates: start: 19920623, end: 19920728
  15. AMPHOTERICIN B [Concomitant]
     Dosage: UNK
     Dates: start: 19920620, end: 19920728

REACTIONS (2)
  - DEATH [None]
  - BONE PAIN [None]
